FAERS Safety Report 5171440-0 (Version None)
Quarter: 2006Q4

REPORT INFORMATION
  Report Type: 
  Country: None (occurrence: None)
  Receive Date: 20061213
  Receipt Date: 20061201
  Transmission Date: 20070319
  Serious: Yes (Hospitalization)
  Sender: FDA-Public Use
  Company Number: FR-AVENTIS-200614333FR

PATIENT
  Age: 16 Year
  Sex: Female

DRUGS (2)
  1. ARAVA [Suspect]
     Indication: SPONDYLITIS
     Route: 048
     Dates: start: 20060101, end: 20061101
  2. ANALGESICS [Concomitant]

REACTIONS (2)
  - MEDICATION ERROR [None]
  - PYREXIA [None]
